FAERS Safety Report 4398221-X (Version None)
Quarter: 2004Q3

REPORT INFORMATION
  Report Type: 
  Country: None (occurrence: None)
  Receive Date: 20040715
  Receipt Date: 20021017
  Transmission Date: 20050211
  Serious: Yes (Hospitalization, Other)
  Sender: FDA-Public Use
  Company Number: US-BRISTOL-MYERS SQUIBB COMPANY-12079174

PATIENT
  Age: 67 Year
  Sex: Male
  Weight: 31 kg

DRUGS (4)
  1. PACLITAXEL [Suspect]
     Indication: BLADDER CANCER
     Route: 042
     Dates: start: 20021010, end: 20021107
  2. CISPLATIN [Suspect]
     Indication: BLADDER CANCER
     Route: 042
     Dates: start: 20021010, end: 20021031
  3. GEMCITABINE [Suspect]
     Indication: BLADDER CANCER
     Route: 042
     Dates: start: 20021010, end: 20021107
  4. MARCUMAR [Suspect]
     Indication: COAGULOPATHY
     Dosage: DURATION OF THERAPY: 1 YEAR 23 WEEKS 7 DAYS
     Route: 048
     Dates: start: 20010501, end: 20021015

REACTIONS (7)
  - BLOOD CREATININE INCREASED [None]
  - COAGULOPATHY [None]
  - DEHYDRATION [None]
  - FATIGUE [None]
  - MARKEDLY REDUCED DIETARY INTAKE [None]
  - PYREXIA [None]
  - VITAMIN K DEFICIENCY [None]
